FAERS Safety Report 7409529-5 (Version None)
Quarter: 2011Q2

REPORT INFORMATION
  Report Type: 
  Country: None (occurrence: None)
  Receive Date: 20110412
  Receipt Date: 20110408
  Transmission Date: 20111010
  Serious: Yes (Other)
  Sender: FDA-Public Use
  Company Number: US-BRISTOL-MYERS SQUIBB COMPANY-15665011

PATIENT

DRUGS (2)
  1. ABILIFY [Suspect]
     Indication: DEPRESSION
     Route: 048
  2. SSRI [Suspect]
     Indication: DEPRESSION

REACTIONS (1)
  - MANIA [None]
